FAERS Safety Report 21299823 (Version 4)
Quarter: 2025Q3

REPORT INFORMATION
  Report Type: Report from Study
  Country: US (occurrence: US)
  Receive Date: 20220906
  Receipt Date: 20250710
  Transmission Date: 20251020
  Serious: Yes (Death, Hospitalization, Other)
  Sender: JAZZ
  Company Number: US-GW PHARMA-2022-US-028349

PATIENT
  Age: 17 Year
  Sex: Female

DRUGS (5)
  1. EPIDIOLEX [Suspect]
     Active Substance: CANNABIDIOL
     Indication: Pneumonia
     Dates: start: 20210810
  2. EPIDIOLEX [Suspect]
     Active Substance: CANNABIDIOL
     Indication: Neurogenic bladder
  3. EPIDIOLEX [Suspect]
     Active Substance: CANNABIDIOL
     Indication: Epilepsy
  4. EPIDIOLEX [Suspect]
     Active Substance: CANNABIDIOL
     Indication: Lennox-Gastaut syndrome
  5. EPIDIOLEX [Suspect]
     Active Substance: CANNABIDIOL
     Indication: Cerebral palsy

REACTIONS (4)
  - Death [Fatal]
  - Hospitalisation [Unknown]
  - Off label use [Unknown]
  - Product dose omission issue [Unknown]

NARRATIVE: CASE EVENT DATE: 20220901
